FAERS Safety Report 8167751-7 (Version None)
Quarter: 2012Q1

REPORT INFORMATION
  Report Type: 
  Country: None (occurrence: None)
  Receive Date: 20120227
  Receipt Date: 20120223
  Transmission Date: 20120608
  Serious: No
  Sender: FDA-Public Use
  Company Number: US-PFIZER INC-2012048762

PATIENT
  Sex: Female
  Weight: 124.72 kg

DRUGS (6)
  1. NAPROXEN (ALEVE) [Concomitant]
     Dosage: UNK
  2. LYRICA [Suspect]
     Indication: FIBROMYALGIA
  3. HYDROCODONE [Concomitant]
     Dosage: UNK
  4. SOMA [Concomitant]
     Dosage: UNK
  5. LYRICA [Suspect]
     Indication: PAIN
     Dosage: 300 MG, 1X/DAY
     Route: 048
     Dates: start: 20070101, end: 20100201
  6. NEURONTIN [Suspect]
     Indication: RESTLESS LEGS SYNDROME
     Dosage: ONE 300 MG IN MORNING AND IN THE AFTERNOON AND TWO 300 MG AT NIGHT
     Route: 048
     Dates: start: 20100101

REACTIONS (1)
  - RESTLESS LEGS SYNDROME [None]
